FAERS Safety Report 8063165-9 (Version None)
Quarter: 2012Q1

REPORT INFORMATION
  Report Type: 
  Country: None (occurrence: None)
  Receive Date: 20120117
  Receipt Date: 20120103
  Transmission Date: 20120608
  Serious: Yes (Death)
  Sender: FDA-Public Use
  Company Number: B0773524A

PATIENT
  Age: 52 Year
  Sex: Male

DRUGS (2)
  1. PAROXETINE HYDROCHLORIDE [Suspect]
     Indication: PRODUCT USED FOR UNKNOWN INDICATION
     Dosage: ORAL
     Route: 048
  2. VENLAFAXINE HYDROCHLORIDE [Suspect]
     Indication: PRODUCT USED FOR UNKNOWN INDICATION
     Dosage: ORAL
     Route: 048

REACTIONS (12)
  - CONVULSION [None]
  - INTENTIONAL SELF-INJURY [None]
  - COMPLETED SUICIDE [None]
  - MYOCLONUS [None]
  - CARDIO-RESPIRATORY ARREST [None]
  - FOREIGN BODY [None]
  - MENTAL STATUS CHANGES [None]
  - LACERATION [None]
  - MUSCLE RIGIDITY [None]
  - HEART RATE INCREASED [None]
  - HYPERREFLEXIA [None]
  - TOXICITY TO VARIOUS AGENTS [None]
